FAERS Safety Report 13363022 (Version 12)
Quarter: 2019Q4

REPORT INFORMATION
  Report Type: Report from Study
  Country: US (occurrence: US)
  Receive Date: 20170323
  Receipt Date: 20191105
  Transmission Date: 20200122
  Serious: Yes (Other)
  Sender: FDA-Public Use
  Company Number: PHHY2017US044053

PATIENT
  Age: 57 Year
  Sex: Female

DRUGS (1)
  1. GILENYA [Suspect]
     Active Substance: FINGOLIMOD HYDROCHLORIDE
     Indication: MULTIPLE SCLEROSIS
     Dosage: UNK, QD
     Route: 048

REACTIONS (28)
  - Lymphocyte count decreased [Not Recovered/Not Resolved]
  - Neoplasm [Unknown]
  - Irritability [Unknown]
  - Lichenoid keratosis [Unknown]
  - Fatigue [Recovered/Resolved]
  - Urinary tract infection [Recovered/Resolved]
  - Insomnia [Unknown]
  - Hypertension [Unknown]
  - Disturbance in attention [Recovered/Resolved]
  - Musculoskeletal stiffness [Recovered/Resolved]
  - Balance disorder [Recovered/Resolved]
  - Rosacea [Unknown]
  - Extensor plantar response [Unknown]
  - Alanine aminotransferase increased [Recovered/Resolved]
  - Melanocytic naevus [Unknown]
  - Haemangioma [Unknown]
  - Fibrous histiocytoma [Unknown]
  - Fatigue [Recovered/Resolved]
  - Hypoaesthesia [Unknown]
  - Upper respiratory tract infection [Unknown]
  - Seborrhoeic keratosis [Unknown]
  - Diarrhoea [Recovered/Resolved]
  - Blood alkaline phosphatase increased [Recovered/Resolved]
  - Nausea [Recovered/Resolved]
  - Decreased vibratory sense [Unknown]
  - Aspartate aminotransferase increased [Recovered/Resolved]
  - Anxiety [Recovered/Resolved]
  - Faeces hard [Recovered/Resolved]

NARRATIVE: CASE EVENT DATE: 20161206
